FAERS Safety Report 22159934 (Version 1)
Quarter: 2023Q1

REPORT INFORMATION
  Report Type: Spontaneous
  Country: US (occurrence: None)
  Receive Date: 20230331
  Receipt Date: 20230331
  Transmission Date: 20230417
  Serious: Yes (Other)
  Sender: FDA-Public Use
  Company Number: US-ROCHE-3318086

PATIENT
  Sex: Male

DRUGS (1)
  1. AVASTIN [Suspect]
     Active Substance: BEVACIZUMAB
     Indication: Lung neoplasm
     Route: 042
     Dates: start: 202209

REACTIONS (6)
  - Hemiparesis [Unknown]
  - Feeling abnormal [Unknown]
  - Off label use [Unknown]
  - Tremor [Unknown]
  - Insomnia [Unknown]
  - Dysphagia [Unknown]
